FAERS Safety Report 19325284 (Version 1)
Quarter: 2021Q2

REPORT INFORMATION
  Report Type: Spontaneous
  Country: BR (occurrence: BR)
  Receive Date: 20210528
  Receipt Date: 20210528
  Transmission Date: 20210717
  Serious: Yes (Other)
  Sender: FDA-Public Use
  Company Number: BR-AMERICAN REGENT INC-2021001352

PATIENT
  Age: 39 Year
  Sex: Female

DRUGS (3)
  1. IMOSEC [Concomitant]
     Active Substance: LOPERAMIDE
     Indication: PRODUCT USED FOR UNKNOWN INDICATION
     Dosage: 5 MILLIGRAM
     Route: 065
     Dates: start: 2020
  2. MESALAZINE [Suspect]
     Active Substance: MESALAMINE
     Indication: COLITIS ULCERATIVE
     Dosage: 1 DOSAGE FORM, 1 IN 1 D
     Route: 065
     Dates: start: 2020
  3. VENOFER [Suspect]
     Active Substance: IRON SUCROSE
     Indication: ANAEMIA
     Dosage: UNK
     Route: 042
     Dates: start: 2019, end: 202102

REACTIONS (2)
  - Illness [Unknown]
  - Product availability issue [Unknown]

NARRATIVE: CASE EVENT DATE: 202102
